FAERS Safety Report 16725432 (Version 2)
Quarter: 2019Q3

REPORT INFORMATION
  Report Type: Spontaneous
  Country: US (occurrence: US)
  Receive Date: 20190821
  Receipt Date: 20190902
  Transmission Date: 20191005
  Serious: Yes (Other)
  Sender: FDA-Public Use
  Company Number: US-ALLERGAN-1933862US

PATIENT
  Sex: Male

DRUGS (2)
  1. COMBIGAN [Suspect]
     Active Substance: BRIMONIDINE TARTRATE\TIMOLOL MALEATE
     Indication: OPEN ANGLE GLAUCOMA
     Dosage: 2 GTT, BID
     Route: 047
     Dates: end: 201811
  2. LUMIGAN [Suspect]
     Active Substance: BIMATOPROST
     Indication: OPEN ANGLE GLAUCOMA
     Dosage: 2 GTT, QHS
     Route: 047
     Dates: end: 201811

REACTIONS (4)
  - Glaucoma surgery [Unknown]
  - Dry eye [Unknown]
  - Eye irritation [Recovered/Resolved]
  - Cataract [Unknown]
